FAERS Safety Report 15213843 (Version 1)
Quarter: 2018Q3

REPORT INFORMATION
  Report Type: Spontaneous
  Country: US (occurrence: US)
  Receive Date: 20180730
  Receipt Date: 20180730
  Transmission Date: 20181010
  Serious: Yes (Other)
  Sender: FDA-Public Use
  Company Number: US-SA-2018SA073812

PATIENT
  Age: 67 Year
  Sex: Female
  Weight: 81.64 kg

DRUGS (9)
  1. NEOSAR [Concomitant]
     Active Substance: CYCLOPHOSPHAMIDE
  2. DOXORUBICIN [Concomitant]
     Active Substance: DOXORUBICIN
  3. NIFEDIPINE. [Concomitant]
     Active Substance: NIFEDIPINE
  4. DEXAMETHASONE. [Concomitant]
     Active Substance: DEXAMETHASONE
  5. TAXOTERE [Suspect]
     Active Substance: DOCETAXEL
     Indication: BREAST CANCER
     Dosage: UNK UNK,QW
     Route: 051
     Dates: start: 20150803, end: 20150803
  6. ALOXI [Concomitant]
     Active Substance: PALONOSETRON HYDROCHLORIDE
  7. CLONIDINE. [Concomitant]
     Active Substance: CLONIDINE
  8. LISINOPRIL. [Concomitant]
     Active Substance: LISINOPRIL
  9. TAXOTERE [Suspect]
     Active Substance: DOCETAXEL
     Dosage: UNK UNK,QW
     Route: 051
     Dates: start: 20151218, end: 20151218

REACTIONS (1)
  - Alopecia [Not Recovered/Not Resolved]

NARRATIVE: CASE EVENT DATE: 201604
